FAERS Safety Report 5957309-X (Version None)
Quarter: 2008Q4

REPORT INFORMATION
  Report Type: 
  Country: None (occurrence: None)
  Receive Date: 20081118
  Receipt Date: 20081113
  Transmission Date: 20090506
  Serious: Yes (Hospitalization)
  Sender: FDA-Public Use
  Company Number: ZA-B.I. PHARMACEUTICALS,INC./RIDGEFIELD-2008-BP-17235BP

PATIENT
  Sex: Male
  Weight: 95 kg

DRUGS (1)
  1. DABIGATRAN [Suspect]
     Route: 048

REACTIONS (1)
  - RENAL FAILURE [None]
